APPROVED DRUG PRODUCT: CILOSTAZOL
Active Ingredient: CILOSTAZOL
Strength: 100MG
Dosage Form/Route: TABLET;ORAL
Application: A077027 | Product #002 | TE Code: AB
Applicant: TEVA PHARMACEUTICALS USA INC
Approved: Nov 24, 2004 | RLD: No | RS: Yes | Type: RX